FAERS Safety Report 23422006 (Version 1)
Quarter: 2024Q1

REPORT INFORMATION
  Report Type: Spontaneous
  Country: JM (occurrence: JM)
  Receive Date: 20240119
  Receipt Date: 20240119
  Transmission Date: 20240409
  Serious: Yes (Hospitalization)
  Sender: FDA-Public Use
  Company Number: JM-002147023-NVSC2024JM011414

PATIENT
  Sex: Male

DRUGS (1)
  1. GLIVEC [Suspect]
     Active Substance: IMATINIB MESYLATE
     Indication: Gastrointestinal stromal tumour
     Dosage: 400 MG (1 X 400)
     Route: 065

REACTIONS (4)
  - Abdominal pain lower [Unknown]
  - Dysuria [Unknown]
  - Dyspepsia [Unknown]
  - Intestinal obstruction [Unknown]
